FAERS Safety Report 10419871 (Version 2)
Quarter: 2015Q2

REPORT INFORMATION
  Report Type: Spontaneous
  Country: US (occurrence: None)
  Receive Date: 20140627
  Receipt Date: 20150625
  Transmission Date: 20150821
  Serious: Yes (Other)
  Sender: FDA-Public Use
  Company Number: PHEH2014US004596

PATIENT
  Age: 67 Year
  Sex: Female

DRUGS (11)
  1. LEVOTHYROXINE [Concomitant]
     Active Substance: LEVOTHYROXINE
  2. RELION/NOVOLIN N (INSULIN HUMAN INJECTION, ISOPHANE) [Concomitant]
  3. FISH OIL [Concomitant]
     Active Substance: FISH OIL
  4. VITAMIN D3 [Concomitant]
     Active Substance: CHOLECALCIFEROL
  5. ALLOPURINOL. [Concomitant]
     Active Substance: ALLOPURINOL
  6. BABY ASPIRIN (ACETYLSALICYLIC ACID) [Concomitant]
     Active Substance: ASPIRIN
  7. BENICAR [Suspect]
     Active Substance: OLMESARTAN MEDOXOMIL
     Indication: PRODUCT USED FOR UNKNOWN INDICATION
  8. DIOVAN HCT [Suspect]
     Active Substance: HYDROCHLOROTHIAZIDE\VALSARTAN
     Dosage: VALS 320MG. HCTZ MG)
  9. HYDROCHLOROTHIAZIDE, VALSARTAN (VALSARTAN, HYDROCHLOROTHIAZIDE) UNKNOWN [Suspect]
     Active Substance: HYDROCHLOROTHIAZIDE\VALSARTAN
     Indication: HEART RATE IRREGULAR
     Dosage: VALS 320 MG, HCTZ 25 MG)
  10. RELION HUMULIN R (INSULIN HUMAN) [Concomitant]
  11. MAGNESIUM OXIDE. [Concomitant]
     Active Substance: MAGNESIUM OXIDE

REACTIONS (5)
  - Blood pressure increased [None]
  - Nausea [None]
  - Vomiting [None]
  - Heart rate irregular [None]
  - Feeling abnormal [None]
